FAERS Safety Report 4737733-3 (Version None)
Quarter: 2005Q3

REPORT INFORMATION
  Report Type: 
  Country: None (occurrence: None)
  Receive Date: 20050809
  Receipt Date: 20050617
  Transmission Date: 20060218
  Serious: Yes (Other)
  Sender: FDA-Public Use
  Company Number: ES-NOVOPROD-245193

PATIENT
  Age: 44 Year
  Sex: Male
  Weight: 69 kg

DRUGS (4)
  1. NOVOMIX 30 FLEXPEN [Suspect]
     Indication: INSULIN-REQUIRING TYPE II DIABETES MELLITUS
     Route: 058
     Dates: start: 20040825
  2. INDOMETHACIN [Concomitant]
     Dosage: 2+2+2 PER DAY
  3. AMOXICILLIN [Concomitant]
  4. CLAVULANIC ACID [Concomitant]

REACTIONS (2)
  - ERYTHEMA NODOSUM [None]
  - PHARYNGOTONSILLITIS [None]
